FAERS Safety Report 5203990-2 (Version None)
Quarter: 2007Q1

REPORT INFORMATION
  Report Type: 
  Country: None (occurrence: None)
  Receive Date: 20070110
  Receipt Date: 20061220
  Transmission Date: 20070707
  Serious: Yes (Death)
  Sender: FDA-Public Use
  Company Number: FR-PFIZER INC-2006154122

PATIENT
  Age: 62 Year
  Sex: Male

DRUGS (5)
  1. SOLU-MEDROL [Suspect]
     Dosage: DAILY DOSE:120MG
     Route: 042
     Dates: start: 20060628, end: 20060702
  2. ENOXAPARIN SODIUM [Suspect]
     Dosage: DAILY DOSE:.4ML
     Route: 058
     Dates: start: 20060630, end: 20060630
  3. PANTOPRAZOLE SODIUM [Suspect]
     Dosage: DAILY DOSE:40MG
     Route: 042
  4. ACETAMINOPHEN [Suspect]
     Dosage: DAILY DOSE:1GRAM
     Route: 042
     Dates: start: 20060629, end: 20060630
  5. ZANTAC [Suspect]
     Route: 042

REACTIONS (1)
  - THROMBOCYTOPENIA [None]
